FAERS Safety Report 6470440-8 (Version None)
Quarter: 2009Q4

REPORT INFORMATION
  Report Type: 
  Country: None (occurrence: None)
  Receive Date: 20091202
  Receipt Date: 20091202
  Transmission Date: 20100525
  Serious: Yes (Life-Threatening)
  Sender: FDA-Public Use
  Company Number: None

PATIENT
  Age: 85 Year
  Sex: Male
  Weight: 107 kg

DRUGS (2)
  1. TRAMADOL HCL [Suspect]
     Indication: HIP FRACTURE
     Dosage: 50 MG TID PO
     Route: 048
     Dates: start: 20091127
  2. TRAMADOL HCL [Suspect]
     Indication: PAIN
     Dosage: 50 MG TID PO
     Route: 048
     Dates: start: 20091127

REACTIONS (2)
  - DYSPNOEA [None]
  - MALAISE [None]
